FAERS Safety Report 14542806 (Version 1)
Quarter: 2018Q1

REPORT INFORMATION
  Report Type: Spontaneous
  Country: DE (occurrence: DE)
  Receive Date: 20180216
  Receipt Date: 20180216
  Transmission Date: 20180509
  Serious: Yes (Hospitalization)
  Sender: FDA-Public Use
  Company Number: DE-OTSUKA-DJ201401937

PATIENT
  Age: 1 Day
  Sex: Female
  Weight: 2.28 kg

DRUGS (2)
  1. ABILIFY [Suspect]
     Active Substance: ARIPIPRAZOLE
     Indication: PRODUCT USED FOR UNKNOWN INDICATION
     Dosage: UNK
     Route: 064
     Dates: start: 20111111, end: 20120717
  2. ZYPREXA [Suspect]
     Active Substance: OLANZAPINE
     Indication: PRODUCT USED FOR UNKNOWN INDICATION
     Dosage: UNK
     Route: 064
     Dates: start: 20111111, end: 20120717

REACTIONS (3)
  - Foetal exposure during pregnancy [Unknown]
  - Temperature regulation disorder [Unknown]
  - Premature baby [Unknown]

NARRATIVE: CASE EVENT DATE: 20111111
